FAERS Safety Report 8382285 (Version 4)
Quarter: 2013Q2

REPORT INFORMATION
  Report Type: Spontaneous
  Country: US (occurrence: US)
  Receive Date: 20120201
  Receipt Date: 20130404
  Transmission Date: 20140414
  Serious: Yes (Other)
  Sender: FDA-Public Use
  Company Number: US-JNJFOC-20120112013

PATIENT
  Sex: Female

DRUGS (5)
  1. TOPOMAX [Suspect]
     Indication: MIGRAINE
     Route: 048
     Dates: start: 2004, end: 2006
  2. AVONEX [Suspect]
     Indication: MULTIPLE SCLEROSIS
     Route: 030
  3. WELLBUTRIN XL [Suspect]
     Indication: DEPRESSION
     Route: 048
  4. CELEXA [Suspect]
     Indication: DEPRESSION
     Route: 048
     Dates: start: 2005
  5. PROVIGIL [Suspect]
     Indication: PRODUCT USED FOR UNKNOWN INDICATION
     Route: 048

REACTIONS (3)
  - Exposure during pregnancy [Recovered/Resolved]
  - Major depression [Not Recovered/Not Resolved]
  - Stress [Unknown]
